FAERS Safety Report 24135559 (Version 7)
Quarter: 2025Q2

REPORT INFORMATION
  Report Type: Report from Study
  Country: CA (occurrence: CA)
  Receive Date: 20240725
  Receipt Date: 20250409
  Transmission Date: 20250716
  Serious: Yes (Other)
  Sender: TAKEDA
  Company Number: CA-TAKEDA-2017TUS021746

PATIENT
  Sex: Female

DRUGS (27)
  1. VEDOLIZUMAB [Suspect]
     Active Substance: VEDOLIZUMAB
     Indication: Crohn^s disease
  2. VEDOLIZUMAB [Suspect]
     Active Substance: VEDOLIZUMAB
  3. VEDOLIZUMAB [Suspect]
     Active Substance: VEDOLIZUMAB
  4. VEDOLIZUMAB [Suspect]
     Active Substance: VEDOLIZUMAB
  5. VEDOLIZUMAB [Suspect]
     Active Substance: VEDOLIZUMAB
  6. VEDOLIZUMAB [Suspect]
     Active Substance: VEDOLIZUMAB
  7. VEDOLIZUMAB [Suspect]
     Active Substance: VEDOLIZUMAB
  8. VEDOLIZUMAB [Suspect]
     Active Substance: VEDOLIZUMAB
  9. VEDOLIZUMAB [Suspect]
     Active Substance: VEDOLIZUMAB
  10. ENTOCORT [Concomitant]
     Active Substance: BUDESONIDE
  11. IMURAN [Concomitant]
     Active Substance: AZATHIOPRINE
  12. PROGESTERONE [Concomitant]
     Active Substance: PROGESTERONE
  13. CLONAZEPAM [Concomitant]
     Active Substance: CLONAZEPAM
  14. EBASTINE [Concomitant]
     Active Substance: EBASTINE
  15. VENTOLIN [Concomitant]
     Active Substance: ALBUTEROL SULFATE
  16. ATIVAN [Concomitant]
     Active Substance: LORAZEPAM
  17. DIENOGEST [Concomitant]
     Active Substance: DIENOGEST
  18. ELAVIL [Concomitant]
     Active Substance: AMITRIPTYLINE HYDROCHLORIDE
  19. PANTOPRAZOLE [Concomitant]
     Active Substance: PANTOPRAZOLE
  20. Reactine [Concomitant]
  21. VITAMIN D [Concomitant]
     Active Substance: VITAMIN D NOS
  22. Avamist [Concomitant]
  23. STRATTERA [Concomitant]
     Active Substance: ATOMOXETINE HYDROCHLORIDE
  24. BILASTINE [Concomitant]
     Active Substance: BILASTINE
  25. METHYLPHENIDATE [Concomitant]
     Active Substance: METHYLPHENIDATE
  26. INTUNIV [Concomitant]
     Active Substance: GUANFACINE HYDROCHLORIDE
  27. RYALTRIS [Concomitant]
     Active Substance: MOMETASONE FUROATE MONOHYDRATE\OLOPATADINE HYDROCHLORIDE

REACTIONS (2)
  - Crohn^s disease [Unknown]
  - Drug effect less than expected [Unknown]
